FAERS Safety Report 13280667 (Version 1)
Quarter: 2017Q1

REPORT INFORMATION
  Report Type: Report from Study
  Country: CA (occurrence: CA)
  Receive Date: 20170301
  Receipt Date: 20170301
  Transmission Date: 20170428
  Serious: Yes (Hospitalization)
  Sender: FDA-Public Use
  Company Number: CA-ROCHE-1899183

PATIENT
  Age: 56 Year
  Sex: Female
  Weight: 66.1 kg

DRUGS (20)
  1. PANTOLOC [Concomitant]
     Active Substance: PANTOPRAZOLE SODIUM
     Indication: DYSPEPSIA
     Route: 065
     Dates: start: 20161121
  2. MORPHINE [Concomitant]
     Active Substance: MORPHINE
     Route: 065
     Dates: start: 20161205
  3. CLARITIN [Concomitant]
     Active Substance: LORATADINE
     Indication: FLUSHING
     Route: 065
     Dates: start: 20161215
  4. IMMUNE GLOBULIN NOS [Concomitant]
     Active Substance: IMMUNE GLOBULIN NOS
     Indication: SINUSITIS
     Route: 065
     Dates: start: 20170209
  5. BENADRYL [Concomitant]
     Active Substance: DIPHENHYDRAMINE HYDROCHLORIDE
     Indication: PREMEDICATION
     Route: 065
     Dates: start: 20170214, end: 20170214
  6. VENETOCLAX [Suspect]
     Active Substance: VENETOCLAX
     Indication: NON-HODGKIN^S LYMPHOMA
     Dosage: THE MOST RECENT DOSE OF VENETOCLAX WAS ADMINISTERED ON 21/FEB/2017.
     Route: 048
     Dates: start: 20161121
  7. MAXERAN [Concomitant]
     Active Substance: METOCLOPRAMIDE HYDROCHLORIDE
     Indication: NAUSEA
     Route: 065
     Dates: start: 20161207
  8. CYCLOPHOSPHAMIDE. [Suspect]
     Active Substance: CYCLOPHOSPHAMIDE
     Indication: NON-HODGKIN^S LYMPHOMA
     Dosage: THE MOST RECENT DOSE OF CYCLOPHOSPHAMIDE 1285 MG WAS ADMINISTERED ON 14/FEB/2017 AT 1315.
     Route: 042
     Dates: start: 20161118
  9. DOXORUBICIN [Suspect]
     Active Substance: DOXORUBICIN
     Indication: NON-HODGKIN^S LYMPHOMA
     Dosage: THE MOST RECENT DOSE OF DOXORUBICIN 86 MG WAS ADMINISTERED ON 14/FEB/2017 AT 1250.
     Route: 042
     Dates: start: 20161118
  10. ELAVIL [Concomitant]
     Active Substance: AMITRIPTYLINE HYDROCHLORIDE
     Indication: INSOMNIA
     Route: 065
     Dates: start: 20170126
  11. DECADRON [Concomitant]
     Active Substance: DEXAMETHASONE
     Indication: PREMEDICATION
     Route: 065
     Dates: start: 20170214, end: 20170214
  12. PREDNISONE. [Suspect]
     Active Substance: PREDNISONE
     Indication: NON-HODGKIN^S LYMPHOMA
     Dosage: DAYS 1-5?THE MOST RECENT DOSE OF PREDNISONE WAS ADMINISTERED ON 14/FEB/2017.
     Route: 048
     Dates: start: 20161118
  13. MAXERAN [Concomitant]
     Active Substance: METOCLOPRAMIDE HYDROCHLORIDE
     Indication: VOMITING
  14. ZOPLICONE [Concomitant]
     Active Substance: ZOPICLONE
     Indication: INSOMNIA
     Route: 065
     Dates: start: 20170117, end: 20170126
  15. ATIVAN [Concomitant]
     Active Substance: LORAZEPAM
     Indication: INSOMNIA
     Route: 065
     Dates: start: 20170126
  16. VINCRISTINE [Suspect]
     Active Substance: VINCRISTINE
     Indication: NON-HODGKIN^S LYMPHOMA
     Dosage: THE MOST RECENT DOSE OF VINCRISTINE 2 MG WAS ADMINISTERED ON 14/FEB/2017 AT 1256.
     Route: 042
     Dates: start: 20161118
  17. KYTRIL [Concomitant]
     Active Substance: GRANISETRON HYDROCHLORIDE
     Indication: PREMEDICATION
     Route: 065
     Dates: start: 20170214, end: 20170214
  18. RITUXIMAB [Suspect]
     Active Substance: RITUXIMAB
     Indication: NON-HODGKIN^S LYMPHOMA
     Dosage: THE MOST RECENT DOSE OF RITUXIMAB 642 MG WAS ADMINISTERED ON 14/FEB/2017 AT 1018.
     Route: 042
     Dates: start: 20161117
  19. TYLENOL [Concomitant]
     Active Substance: ACETAMINOPHEN
     Indication: HEADACHE
     Route: 065
     Dates: start: 2016
  20. ACETAMINOPHEN. [Concomitant]
     Active Substance: ACETAMINOPHEN
     Indication: PREMEDICATION
     Route: 065
     Dates: start: 20170214, end: 20170214

REACTIONS (1)
  - Acute sinusitis [Recovered/Resolved]

NARRATIVE: CASE EVENT DATE: 20170222
